FAERS Safety Report 7310990-5 (Version None)
Quarter: 2011Q1

REPORT INFORMATION
  Report Type: 
  Country: None (occurrence: None)
  Receive Date: 20110210
  Receipt Date: 20110128
  Transmission Date: 20110831
  Serious: Yes (Hospitalization, Disabling)
  Sender: FDA-Public Use
  Company Number: UTC-004948

PATIENT
  Age: 57 Year
  Sex: Female

DRUGS (3)
  1. WARFARIN (WARFARIN) [Concomitant]
  2. REMODULIN [Suspect]
     Indication: PULMONARY HYPERTENSION
     Dosage: 141.12 UG/KG (0.098 UG/KG, 1 IN 1 MIN), INTRAVENOUS
     Route: 042
     Dates: start: 20080301
  3. BOSENTAN (BOSENTAN) [Concomitant]

REACTIONS (1)
  - EPISTAXIS [None]
